FAERS Safety Report 20003929 (Version 3)
Quarter: 2022Q2

REPORT INFORMATION
  Report Type: Spontaneous
  Country: CA (occurrence: CA)
  Receive Date: 20211027
  Receipt Date: 20220603
  Transmission Date: 20220720
  Serious: Yes (Life-Threatening, Hospitalization, Other)
  Sender: FDA-Public Use
  Company Number: CA-TEVA-2021-CA-1969733

PATIENT
  Age: 47 Year
  Sex: Female

DRUGS (61)
  1. CYCLOBENZAPRINE [Interacting]
     Active Substance: CYCLOBENZAPRINE
     Indication: Scoliosis
     Dosage: 20 MILLIGRAM DAILY;
     Route: 048
  2. CYCLOBENZAPRINE [Interacting]
     Active Substance: CYCLOBENZAPRINE
     Indication: Pain
     Dosage: 30 MILLIGRAM DAILY;
     Route: 048
  3. CYCLOBENZAPRINE [Interacting]
     Active Substance: CYCLOBENZAPRINE
     Route: 048
  4. CYCLOBENZAPRINE [Interacting]
     Active Substance: CYCLOBENZAPRINE
     Route: 048
  5. GABAPENTIN [Interacting]
     Active Substance: GABAPENTIN
     Indication: Scoliosis
     Dosage: 1600 MILLIGRAM DAILY;
     Route: 065
  6. GABAPENTIN [Interacting]
     Active Substance: GABAPENTIN
     Indication: Pain
     Dosage: 1800 MILLIGRAM DAILY;
     Route: 048
  7. GABAPENTIN [Interacting]
     Active Substance: GABAPENTIN
     Route: 048
  8. FLUOXETINE [Interacting]
     Active Substance: FLUOXETINE HYDROCHLORIDE
     Indication: Major depression
     Route: 048
  9. FLUOXETINE [Interacting]
     Active Substance: FLUOXETINE HYDROCHLORIDE
     Route: 048
  10. FLUOXETINE [Interacting]
     Active Substance: FLUOXETINE HYDROCHLORIDE
     Route: 048
  11. FLUOXETINE [Interacting]
     Active Substance: FLUOXETINE HYDROCHLORIDE
     Dosage: 80 MILLIGRAM DAILY;
     Route: 048
  12. FLUOXETINE [Interacting]
     Active Substance: FLUOXETINE HYDROCHLORIDE
     Dosage: 20 MILLIGRAM DAILY;
     Route: 048
  13. RISPERIDONE [Interacting]
     Active Substance: RISPERIDONE
     Indication: Affective disorder
     Dosage: 1 MILLIGRAM DAILY;
     Route: 048
  14. RISPERIDONE [Interacting]
     Active Substance: RISPERIDONE
     Dosage: .25 MILLIGRAM DAILY;
     Route: 048
  15. RISPERIDONE [Interacting]
     Active Substance: RISPERIDONE
     Route: 048
  16. LORAZEPAM [Interacting]
     Active Substance: LORAZEPAM
     Indication: Withdrawal syndrome
     Route: 048
  17. LORAZEPAM [Interacting]
     Active Substance: LORAZEPAM
     Indication: Anxiety
     Dosage: 8 MILLIGRAM DAILY;
     Route: 048
  18. LORAZEPAM [Interacting]
     Active Substance: LORAZEPAM
     Indication: Drug withdrawal maintenance therapy
     Route: 048
  19. LORAZEPAM [Interacting]
     Active Substance: LORAZEPAM
     Route: 065
  20. LORAZEPAM [Interacting]
     Active Substance: LORAZEPAM
     Route: 065
  21. LORAZEPAM [Interacting]
     Active Substance: LORAZEPAM
     Route: 065
  22. LORAZEPAM [Interacting]
     Active Substance: LORAZEPAM
     Route: 065
  23. LORAZEPAM [Interacting]
     Active Substance: LORAZEPAM
     Route: 065
  24. LORAZEPAM [Interacting]
     Active Substance: LORAZEPAM
     Route: 030
  25. LORAZEPAM [Interacting]
     Active Substance: LORAZEPAM
     Route: 065
  26. LORAZEPAM [Interacting]
     Active Substance: LORAZEPAM
     Route: 065
  27. QUETIAPINE [Interacting]
     Active Substance: QUETIAPINE
     Indication: Major depression
     Route: 048
  28. QUETIAPINE [Interacting]
     Active Substance: QUETIAPINE
     Dosage: 200 MILLIGRAM DAILY;
     Route: 065
  29. QUETIAPINE [Interacting]
     Active Substance: QUETIAPINE
     Dosage: 100 MILLIGRAM DAILY;
     Route: 048
  30. METHADONE [Interacting]
     Active Substance: METHADONE HYDROCHLORIDE
     Indication: Drug use disorder
     Dosage: 75 MILLIGRAM DAILY;
     Route: 048
  31. METHADONE [Interacting]
     Active Substance: METHADONE HYDROCHLORIDE
     Route: 065
  32. METHADONE [Interacting]
     Active Substance: METHADONE HYDROCHLORIDE
     Route: 065
  33. METHADONE [Interacting]
     Active Substance: METHADONE HYDROCHLORIDE
     Dosage: 60 MILLIGRAM DAILY;
     Route: 048
  34. METHADONE [Interacting]
     Active Substance: METHADONE HYDROCHLORIDE
     Route: 065
  35. METHADONE [Interacting]
     Active Substance: METHADONE HYDROCHLORIDE
     Route: 048
  36. DOXEPIN [Interacting]
     Active Substance: DOXEPIN
     Indication: Major depression
     Dosage: 50 MILLIGRAM DAILY;
     Route: 048
  37. DOXEPIN [Interacting]
     Active Substance: DOXEPIN
     Route: 048
  38. DOXEPIN [Interacting]
     Active Substance: DOXEPIN
     Route: 048
  39. DOXEPIN [Interacting]
     Active Substance: DOXEPIN
     Dosage: 150 MILLIGRAM DAILY;
     Route: 048
  40. DOXEPIN [Interacting]
     Active Substance: DOXEPIN
     Route: 048
  41. DIVALPROEX SODIUM [Interacting]
     Active Substance: DIVALPROEX SODIUM
     Indication: Mania
     Route: 048
  42. DIVALPROEX SODIUM [Interacting]
     Active Substance: DIVALPROEX SODIUM
     Indication: Affective disorder
     Route: 048
  43. DIVALPROEX SODIUM [Interacting]
     Active Substance: DIVALPROEX SODIUM
     Route: 048
  44. DIVALPROEX SODIUM [Interacting]
     Active Substance: DIVALPROEX SODIUM
     Route: 048
  45. DIVALPROEX SODIUM [Interacting]
     Active Substance: DIVALPROEX SODIUM
     Route: 048
  46. FLUOXETINE [Suspect]
     Active Substance: FLUOXETINE HYDROCHLORIDE
     Indication: Major depression
     Route: 048
  47. TIOTROPIUM [Concomitant]
     Active Substance: TIOTROPIUM
     Indication: Chronic obstructive pulmonary disease
     Route: 055
  48. ALBUTEROL [Concomitant]
     Active Substance: ALBUTEROL
     Indication: Chronic obstructive pulmonary disease
     Route: 055
  49. SPIRIVA [Concomitant]
     Active Substance: TIOTROPIUM BROMIDE MONOHYDRATE
     Route: 065
  50. NAPROXEN [Concomitant]
     Active Substance: NAPROXEN
     Indication: Pain
     Route: 048
  51. NALOXONE [Concomitant]
     Active Substance: NALOXONE
  52. FUROSEMIDE [Concomitant]
     Active Substance: FUROSEMIDE
     Indication: Oedema peripheral
     Route: 065
  53. FUROSEMIDE [Concomitant]
     Active Substance: FUROSEMIDE
     Route: 048
  54. ESTRADIOL [Concomitant]
     Active Substance: ESTRADIOL
     Indication: Endometriosis
     Route: 048
  55. CLONIDINE [Concomitant]
     Active Substance: CLONIDINE
  56. ATENOL (PREMPHARM) [Concomitant]
     Indication: Hypertension
     Route: 048
  57. ATENOL (PREMPHARM) [Concomitant]
  58. DOXEPIN [Concomitant]
     Active Substance: DOXEPIN
  59. FLUOXETINE [Concomitant]
     Active Substance: FLUOXETINE HYDROCHLORIDE
  60. QUETIAPINE [Concomitant]
     Active Substance: QUETIAPINE
  61. RISPERIDONE [Concomitant]
     Active Substance: RISPERIDONE

REACTIONS (6)
  - Depressed level of consciousness [Unknown]
  - Drug interaction [Unknown]
  - Respiratory depression [Unknown]
  - Toxicity to various agents [Unknown]
  - Off label use [Unknown]
  - Potentiating drug interaction [Unknown]
